FAERS Safety Report 4863956-9 (Version None)
Quarter: 2005Q4

REPORT INFORMATION
  Report Type: 
  Country: None (occurrence: None)
  Receive Date: 20051222
  Receipt Date: 20051212
  Transmission Date: 20060501
  Serious: Yes (Hospitalization)
  Sender: FDA-Public Use
  Company Number: AT-BRISTOL-MYERS SQUIBB COMPANY-13212295

PATIENT
  Age: 56 Year
  Sex: Male

DRUGS (9)
  1. WARFARIN SODIUM [Suspect]
     Indication: ATRIAL FIBRILLATION
     Dosage: TEMPORARILY STOPPED
  2. ROSUVASTATIN CALCIUM [Interacting]
  3. RAMIPRIL [Concomitant]
  4. LEVOTHYROXINE SODIUM [Concomitant]
  5. ESCITALOPRAM OXALATE [Concomitant]
  6. CARVEDILOL [Concomitant]
  7. DIGITOXIN TAB [Concomitant]
  8. TAMSULOSIN [Concomitant]
  9. ZOLPIDEM TARTRATE [Concomitant]

REACTIONS (4)
  - BLOOD CREATINE PHOSPHOKINASE INCREASED [None]
  - DRUG INTERACTION [None]
  - INTERNATIONAL NORMALISED RATIO INCREASED [None]
  - MYALGIA [None]
